FAERS Safety Report 14595826 (Version 1)
Quarter: 2018Q1

REPORT INFORMATION
  Report Type: Spontaneous
  Country: DK (occurrence: DK)
  Receive Date: 20180303
  Receipt Date: 20180303
  Transmission Date: 20180509
  Serious: Yes (Death)
  Sender: FDA-Public Use
  Company Number: DK-009507513-1802DNK013291

PATIENT
  Age: 68 Year
  Sex: Female

DRUGS (6)
  1. PANTOLOC [Concomitant]
     Active Substance: PANTOPRAZOLE SODIUM
     Indication: GASTROOESOPHAGEAL REFLUX DISEASE
     Dosage: STRENGTH: 40 MG
     Route: 048
     Dates: start: 20171012
  2. INNOHEP [Concomitant]
     Active Substance: TINZAPARIN SODIUM
     Indication: THROMBOSIS
     Dosage: STRENGTH: 20.000 ANTI-XA UNITS/ML
     Route: 058
     Dates: start: 20171012
  3. KEYTRUDA [Suspect]
     Active Substance: PEMBROLIZUMAB
     Indication: LUNG NEOPLASM MALIGNANT
     Dosage: 125 MG, UNK
     Route: 042
     Dates: start: 20171030
  4. PANODIL [Concomitant]
     Active Substance: ACETAMINOPHEN
     Indication: PAIN
     Dosage: STYRKE: 500 MG - DOSIS: 2 TABLETTER EFTER BEHOV, H?JST 4 GANGE DAGLIGT
     Route: 048
     Dates: start: 20171017
  5. TEMESTA (LORAZEPAM) [Concomitant]
     Active Substance: LORAZEPAM
     Indication: ANXIETY DISORDER
     Dosage: STRENGTH: 1 MG ? DOSE: 1 TABLET AS NEEDED, MAXIMUM 3 TIMES DAILY
     Route: 048
     Dates: start: 20171018
  6. METOPROLOL ORION (METOPROLOL SUCCINATE) [Concomitant]
     Indication: ARRHYTHMIA
     Dosage: STRENGTH: 25 MG
     Route: 048
     Dates: start: 20150315

REACTIONS (5)
  - Blood pressure decreased [Fatal]
  - Chest pain [Fatal]
  - Dyspnoea [Fatal]
  - Pneumonitis [Fatal]
  - Pulmonary oedema [Fatal]

NARRATIVE: CASE EVENT DATE: 20171107
